FAERS Safety Report 9611729 (Version 1)
Quarter: 2013Q4

REPORT INFORMATION
  Report Type: Spontaneous
  Country: US (occurrence: US)
  Receive Date: 20131010
  Receipt Date: 20131010
  Transmission Date: 20140711
  Serious: No
  Sender: FDA-Public Use
  Company Number: US-PFIZER INC-2013290397

PATIENT
  Age: 65 Year
  Sex: Female
  Weight: 125 kg

DRUGS (5)
  1. LYRICA [Suspect]
     Indication: NEURALGIA
     Dosage: 50 MG, 3X/DAY
     Route: 048
     Dates: start: 20120807, end: 20120918
  2. SALAGEN [Concomitant]
     Indication: DRY MOUTH
     Dosage: 5MG
     Dates: start: 201208
  3. AMBIEN [Concomitant]
     Indication: SLEEP DISORDER
     Dosage: 5 MG, 1X/DAY
     Dates: end: 2012
  4. CYMBALTA [Concomitant]
     Indication: NEURALGIA
     Dosage: UNK
     Route: 048
  5. TRAZODONE [Concomitant]
     Indication: SLEEP DISORDER
     Dosage: 75 MG, 1X/DAY AT NIGHT
     Route: 048
     Dates: end: 2012

REACTIONS (1)
  - Sinus disorder [Unknown]
